FAERS Safety Report 4750494-7 (Version None)
Quarter: 2005Q3

REPORT INFORMATION
  Report Type: 
  Country: None (occurrence: None)
  Receive Date: 20050823
  Receipt Date: 20050728
  Transmission Date: 20060218
  Serious: Yes (Other)
  Sender: FDA-Public Use
  Company Number: DE-GLAXOSMITHKLINE-D0047192A

PATIENT
  Age: 79 Year
  Sex: Female
  Weight: 70 kg

DRUGS (9)
  1. AVANDIA [Suspect]
     Indication: DIABETES MELLITUS NON-INSULIN-DEPENDENT
     Dosage: 4MG PER DAY
     Route: 048
  2. METFORMIN HCL [Suspect]
     Indication: DIABETES MELLITUS NON-INSULIN-DEPENDENT
     Route: 065
  3. LOPRESSOR [Concomitant]
     Route: 065
  4. NORVASC [Concomitant]
     Route: 065
  5. PLAVIX [Concomitant]
     Route: 065
  6. ZOCOR [Concomitant]
     Route: 065
  7. MECLIZINE [Concomitant]
     Route: 065
  8. PROTONIX [Concomitant]
     Route: 065
  9. GLYBURIDE [Concomitant]
     Route: 065

REACTIONS (2)
  - ERYTHROPOIESIS ABNORMAL [None]
  - NORMOCHROMIC NORMOCYTIC ANAEMIA [None]
